FAERS Safety Report 20654555 (Version 1)
Quarter: 2022Q1

REPORT INFORMATION
  Report Type: Spontaneous
  Country: CR (occurrence: CR)
  Receive Date: 20220330
  Receipt Date: 20220330
  Transmission Date: 20220423
  Serious: Yes (Disabling, Other)
  Sender: FDA-Public Use
  Company Number: CR-PFIZER INC-202200451016

PATIENT
  Age: 39 Year
  Sex: Male

DRUGS (1)
  1. NORVASC [Suspect]
     Active Substance: AMLODIPINE BESYLATE
     Dosage: 1 DF, DAILY
     Route: 048
     Dates: start: 202109

REACTIONS (3)
  - Fracture [Unknown]
  - Fall [Unknown]
  - Loss of personal independence in daily activities [Unknown]
